FAERS Safety Report 21464481 (Version 1)
Quarter: 2022Q4

REPORT INFORMATION
  Report Type: Spontaneous
  Country: US (occurrence: None)
  Receive Date: 20221014
  Receipt Date: 20221014
  Transmission Date: 20230113
  Serious: No
  Sender: FDA-Public Use
  Company Number: None

PATIENT

DRUGS (3)
  1. SUCCINYLCHOLINE CHLORIDE [Suspect]
     Active Substance: SUCCINYLCHOLINE CHLORIDE
     Route: 042
  2. PHENYLEPHRINE [Suspect]
     Active Substance: PHENYLEPHRINE HYDROCHLORIDE
     Dosage: OTHER STRENGTH : 100 MCG/ML;?
     Route: 042
  3. EPINEPHRINE CHLORIDE SOLUTION [Suspect]
     Active Substance: EPINEPHRINE HYDROCHLORIDE
     Route: 042

REACTIONS (3)
  - Product label confusion [None]
  - Product design confusion [None]
  - Product label issue [None]
